FAERS Safety Report 20336105 (Version 5)
Quarter: 2022Q2

REPORT INFORMATION
  Report Type: Spontaneous
  Country: SK (occurrence: SK)
  Receive Date: 20220114
  Receipt Date: 20220418
  Transmission Date: 20220720
  Serious: Yes (Death, Hospitalization, Other)
  Sender: FDA-Public Use
  Company Number: SK-SA-SAC20220112000121

PATIENT
  Age: 70 Year
  Sex: Female

DRUGS (1)
  1. LIBTAYO [Suspect]
     Active Substance: CEMIPLIMAB-RWLC
     Indication: Squamous cell carcinoma
     Dosage: UNK
     Route: 041
     Dates: start: 202111

REACTIONS (8)
  - COVID-19 [Fatal]
  - SARS-CoV-2 test positive [Fatal]
  - Cerebrovascular accident [Unknown]
  - Monoplegia [Recovered/Resolved]
  - Loss of consciousness [Recovered/Resolved]
  - Confusional state [Recovered/Resolved]
  - Emotional distress [Recovered/Resolved]
  - Spinal pain [Recovered/Resolved]

NARRATIVE: CASE EVENT DATE: 20211216
